FAERS Safety Report 14967285 (Version 1)
Quarter: 2018Q2

REPORT INFORMATION
  Report Type: Spontaneous
  Country: US (occurrence: US)
  Receive Date: 20180604
  Receipt Date: 20180604
  Transmission Date: 20180711
  Serious: Yes (Life-Threatening, Other)
  Sender: FDA-Public Use
  Company Number: US-CHEPLA-C20170492

PATIENT
  Age: 64 Year
  Sex: Female

DRUGS (3)
  1. ATRA [Suspect]
     Active Substance: TRETINOIN
     Indication: ACUTE PROMYELOCYTIC LEUKAEMIA
  2. ALLOPURINOL. [Concomitant]
     Active Substance: ALLOPURINOL
  3. CEFEPIME [Concomitant]
     Active Substance: CEFEPIME HYDROCHLORIDE
     Indication: FEBRILE NEUTROPENIA
     Dosage: 2G EVERY TWO HOURS
     Route: 042

REACTIONS (2)
  - Acute promyelocytic leukaemia differentiation syndrome [Recovered/Resolved]
  - Febrile neutropenia [Recovered/Resolved]
